FAERS Safety Report 6318914-4 (Version None)
Quarter: 2009Q3

REPORT INFORMATION
  Report Type: 
  Country: None (occurrence: None)
  Receive Date: 20090821
  Receipt Date: 20080813
  Transmission Date: 20100115
  Serious: No
  Sender: FDA-Public Use
  Company Number: US-ABBOTT-08P-163-0470582-00

PATIENT
  Sex: Female

DRUGS (1)
  1. NIASPAN [Suspect]
     Indication: BLOOD CHOLESTEROL INCREASED
     Dates: start: 20080801, end: 20080801

REACTIONS (5)
  - BACK PAIN [None]
  - BURNING SENSATION [None]
  - EYELID OEDEMA [None]
  - PAIN [None]
  - RASH GENERALISED [None]
